FAERS Safety Report 6961169-8 (Version None)
Quarter: 2010Q3

REPORT INFORMATION
  Report Type: 
  Country: None (occurrence: None)
  Receive Date: 20100901
  Receipt Date: 20100830
  Transmission Date: 20110219
  Serious: Yes (Hospitalization)
  Sender: FDA-Public Use
  Company Number: US-BRISTOL-MYERS SQUIBB COMPANY-15259468

PATIENT
  Age: 58 Year
  Sex: Female
  Weight: 96 kg

DRUGS (4)
  1. AVAPRO [Suspect]
  2. MIRAPEX [Concomitant]
  3. PRAVASTATIN SODIUM [Concomitant]
  4. LOVAZA [Concomitant]

REACTIONS (1)
  - SPINAL LAMINECTOMY [None]
